FAERS Safety Report 22227415 (Version 1)
Quarter: 2023Q2

REPORT INFORMATION
  Report Type: Spontaneous
  Country: US (occurrence: None)
  Receive Date: 20230417
  Receipt Date: 20230417
  Transmission Date: 20230722
  Serious: Yes (Hospitalization)
  Sender: FDA-Public Use
  Company Number: None

PATIENT
  Age: 73 Year
  Sex: Female

DRUGS (5)
  1. SILDENAFIL [Suspect]
     Active Substance: SILDENAFIL
     Indication: Product used for unknown indication
     Dosage: TAKE 2 TABLETS (40 MG TOTAL) BY MOUTH THREE TIMES DAILY
     Route: 048
     Dates: start: 20190213
  2. PRAVASTATIN TAB 20MG [Concomitant]
  3. SPIRONOLACT TAB 25MG [Concomitant]
  4. TORSEMIDE TAB 20MG [Concomitant]
  5. TYVASO SOL 0.6MG/ML [Concomitant]

REACTIONS (1)
  - Pneumonia [None]

NARRATIVE: CASE EVENT DATE: 20230314
